FAERS Safety Report 9363899 (Version 2)
Quarter: 2013Q3

REPORT INFORMATION
  Report Type: Spontaneous
  Country: US (occurrence: US)
  Receive Date: 20130624
  Receipt Date: 20130712
  Transmission Date: 20140515
  Serious: Yes (Other)
  Sender: FDA-Public Use
  Company Number: US-PFIZER INC-2013186745

PATIENT
  Age: 55 Year
  Sex: Male
  Weight: 90.7 kg

DRUGS (2)
  1. XANAX [Suspect]
     Indication: PANIC DISORDER
     Dosage: 0.5 MG, 3X/DAY
     Route: 048
  2. FENTANYL [Concomitant]
     Dosage: UNK

REACTIONS (8)
  - Spinal column stenosis [Unknown]
  - Back disorder [Unknown]
  - Back pain [Unknown]
  - Pain [Unknown]
  - Drug ineffective [Unknown]
  - Agitation [Unknown]
  - Anxiety [Unknown]
  - Tremor [Unknown]
